FAERS Safety Report 25415070 (Version 1)
Quarter: 2025Q2

REPORT INFORMATION
  Report Type: Spontaneous
  Country: CN (occurrence: CN)
  Receive Date: 20250609
  Receipt Date: 20250609
  Transmission Date: 20250717
  Serious: Yes (Other)
  Sender: JIANGSU HENGRUI
  Company Number: CN-JIANGSU HENGRUI PHARMACEUTICALS CO., LTD.-H2025001203569

PATIENT
  Age: 43 Year
  Weight: 75 kg

DRUGS (5)
  1. OXALIPLATIN [Suspect]
     Active Substance: OXALIPLATIN
     Indication: Rectal cancer
     Dosage: 240 MG, Q3W
  2. CAPECITABINE [Suspect]
     Active Substance: CAPECITABINE
     Indication: Rectal cancer
     Dosage: 2.0G IN THE MORNING AND 1.5G IN THE EVENING, D1-D14,, Q3W
  3. CAPECITABINE [Suspect]
     Active Substance: CAPECITABINE
  4. CAPECITABINE [Suspect]
     Active Substance: CAPECITABINE
  5. CAPECITABINE [Suspect]
     Active Substance: CAPECITABINE

REACTIONS (4)
  - Cardiac failure [Recovered/Resolved]
  - Renal impairment [Recovered/Resolved]
  - Hepatocellular injury [Recovered/Resolved]
  - Nausea [Unknown]
